FAERS Safety Report 5689092-X (Version None)
Quarter: 2008Q1

REPORT INFORMATION
  Report Type: 
  Country: None (occurrence: None)
  Receive Date: 20080331
  Receipt Date: 20080327
  Transmission Date: 20080703
  Serious: Yes (Life-Threatening, Hospitalization)
  Sender: FDA-Public Use
  Company Number: SE-ASTRAZENECA-2008SE01602

PATIENT
  Age: 30603 Day
  Sex: Female

DRUGS (10)
  1. FASLODEX [Suspect]
     Indication: BREAST CANCER
     Route: 030
     Dates: start: 20060920, end: 20060920
  2. FASLODEX [Suspect]
     Route: 030
     Dates: start: 20061004, end: 20070820
  3. ARIMIDEX [Suspect]
     Indication: BREAST CANCER
     Route: 048
     Dates: start: 20060920, end: 20070823
  4. ALVEDON [Concomitant]
     Indication: PAIN
     Route: 048
  5. OXYCONTIN [Concomitant]
     Indication: PAIN
     Route: 048
     Dates: start: 20070601
  6. OXYNORM [Concomitant]
     Indication: PAIN
     Route: 048
     Dates: start: 20070711
  7. LAXOBERAL [Concomitant]
     Indication: CONSTIPATION
     Route: 048
     Dates: start: 20070701
  8. PERFALGAN [Concomitant]
     Indication: PAIN
     Route: 030
     Dates: start: 20070821
  9. PARECOXIB SODIUM [Concomitant]
     Indication: PAIN
     Route: 042
     Dates: start: 20070821
  10. ZOFRAN [Concomitant]
     Indication: NAUSEA
     Route: 042
     Dates: start: 20070821

REACTIONS (2)
  - CHEST PAIN [None]
  - PULMONARY EMBOLISM [None]
